FAERS Safety Report 10702663 (Version 1)
Quarter: 2015Q1

REPORT INFORMATION
  Report Type: Spontaneous
  Country: US (occurrence: US)
  Receive Date: 20150109
  Receipt Date: 20150109
  Transmission Date: 20150721
  Serious: No
  Sender: FDA-Public Use
  Company Number: US-GLAXOSMITHKLINE-US2014032183

PATIENT
  Sex: Male
  Weight: 91 kg

DRUGS (1)
  1. EQUATE NICOTINE [Suspect]
     Active Substance: NICOTINE
     Indication: SMOKING CESSATION THERAPY
     Dosage: 14 MG, UNK
     Route: 062
     Dates: start: 20141121, end: 20141201

REACTIONS (4)
  - Rash [Not Recovered/Not Resolved]
  - Application site dryness [Not Recovered/Not Resolved]
  - Application site reaction [Not Recovered/Not Resolved]
  - Application site erythema [Not Recovered/Not Resolved]
